FAERS Safety Report 9580656 (Version 3)
Quarter: 2014Q1

REPORT INFORMATION
  Report Type: Report from Study
  Country: DE (occurrence: DE)
  Receive Date: 20131002
  Receipt Date: 20140225
  Transmission Date: 20141002
  Serious: Yes (Death, Hospitalization, Other)
  Sender: FDA-Public Use
  Company Number: DE-ROCHE-1282381

PATIENT
  Age: 74 Year
  Sex: Female
  Weight: 54 kg

DRUGS (19)
  1. BEVACIZUMAB [Suspect]
     Indication: COLORECTAL CANCER
     Dosage: MOST RECENT DOSE ON 30/AUG/2013
     Route: 042
     Dates: start: 20130719, end: 20130920
  2. 5-FLUOROURACIL [Suspect]
     Indication: COLORECTAL CANCER
     Dosage: MOST RECENT DOSE ON 30/AUG/2013
     Route: 042
     Dates: start: 20130719, end: 20140122
  3. 5-FLUOROURACIL [Suspect]
     Route: 042
  4. FOLINIC ACID [Suspect]
     Indication: COLORECTAL CANCER
     Dosage: MOST RECENT DOSE ON 30/AUG/2013
     Route: 042
     Dates: start: 20130719, end: 20140122
  5. OXALIPLATIN [Suspect]
     Indication: COLORECTAL CANCER
     Dosage: MOST RECENT DOSE ON 30/AUG/2013
     Route: 042
     Dates: start: 20130719, end: 20130920
  6. OXALIPLATIN [Suspect]
     Route: 042
     Dates: start: 20131230, end: 20140121
  7. CETUXIMAB [Suspect]
     Indication: COLORECTAL CANCER
     Dosage: 400-650 MG
     Route: 042
     Dates: start: 20131011, end: 20131206
  8. IRINOTECAN [Suspect]
     Indication: COLORECTAL CANCER
     Dosage: 250-300 MG
     Route: 042
     Dates: start: 20131011, end: 20131129
  9. PANITUMUMAB [Suspect]
     Indication: COLORECTAL CANCER
     Dosage: 300-350 MG
     Route: 042
     Dates: start: 20131230, end: 20140121
  10. L-THYROXIN [Concomitant]
     Indication: HYPOTHYROIDISM
     Route: 048
     Dates: end: 20140125
  11. IBUPROFEN [Concomitant]
     Indication: PAIN
     Route: 048
  12. METOCLOPRAMID [Concomitant]
     Indication: NAUSEA
     Route: 048
  13. ALIZAPRIDE [Concomitant]
     Indication: NAUSEA
     Route: 048
  14. PANTOPRAZOL [Concomitant]
     Indication: PROPHYLAXIS
     Route: 048
  15. MORPHINE [Concomitant]
     Route: 048
     Dates: end: 20140125
  16. MORPHINE [Concomitant]
     Route: 042
     Dates: start: 20140125, end: 20140128
  17. SODIUM PICOSULFATE [Concomitant]
     Indication: CONSTIPATION
     Route: 048
     Dates: end: 20140125
  18. SPIRONOLACTON [Concomitant]
     Route: 048
     Dates: end: 20140125
  19. JONOSTERIL [Concomitant]
     Route: 042
     Dates: start: 20140125, end: 20140128

REACTIONS (7)
  - Hepatic lesion [Fatal]
  - Renal disorder [Recovering/Resolving]
  - Urinary tract disorder [Recovering/Resolving]
  - Diarrhoea [Recovering/Resolving]
  - Blood creatinine increased [Recovering/Resolving]
  - Epilepsy [Unknown]
  - Coma [Unknown]
